FAERS Safety Report 4604988-5 (Version None)
Quarter: 2005Q2

REPORT INFORMATION
  Report Type: 
  Country: None (occurrence: None)
  Receive Date: 20050217
  Receipt Date: 20041129
  Transmission Date: 20051028
  Serious: Yes (Other)
  Sender: FDA-Public Use
  Company Number: S04-USA-06733-01

PATIENT
  Age: 85 Year
  Sex: Female

DRUGS (17)
  1. NAMENDA [Suspect]
     Indication: DEMENTIA ALZHEIMER'S TYPE
     Dosage: 5 MG QD PO
     Route: 048
     Dates: start: 20040816, end: 20040822
  2. NAMENDA [Suspect]
     Indication: VASCULAR DEMENTIA
     Dosage: 5 MG QD PO
     Route: 048
     Dates: start: 20040816, end: 20040822
  3. NAMENDA [Suspect]
     Indication: DEMENTIA ALZHEIMER'S TYPE
     Dosage: 5 MG BID PO
     Route: 048
     Dates: start: 20040823, end: 20040829
  4. NAMENDA [Suspect]
     Indication: VASCULAR DEMENTIA
     Dosage: 5 MG BID PO
     Route: 048
     Dates: start: 20040823, end: 20040829
  5. NAMENDA [Suspect]
     Indication: DEMENTIA ALZHEIMER'S TYPE
     Dosage: 15 MG QD PO
     Route: 048
     Dates: start: 20040830, end: 20040906
  6. NAMENDA [Suspect]
     Indication: VASCULAR DEMENTIA
     Dosage: 15 MG QD PO
     Route: 048
     Dates: start: 20040830, end: 20040906
  7. NAMENDA [Suspect]
     Indication: DEMENTIA ALZHEIMER'S TYPE
     Dosage: 10 MD BID PO
     Route: 048
     Dates: start: 20040907, end: 20040923
  8. NAMENDA [Suspect]
     Indication: VASCULAR DEMENTIA
     Dosage: 10 MD BID PO
     Route: 048
     Dates: start: 20040907, end: 20040923
  9. DILANTIN [Concomitant]
  10. PHENOBARBITAL [Concomitant]
  11. ARICEPT [Concomitant]
  12. ASPIRIN [Concomitant]
  13. VITAMIN E [Concomitant]
  14. ZANTAC [Concomitant]
  15. TIMOPTIC [Concomitant]
  16. LASIX [Concomitant]
  17. LUMIGAN [Concomitant]

REACTIONS (3)
  - CONTUSION [None]
  - CONVULSION [None]
  - FALL [None]
